FAERS Safety Report 17873316 (Version 2)
Quarter: 2020Q2

REPORT INFORMATION
  Report Type: Report from Study
  Country: None (occurrence: NL)
  Receive Date: 20200608
  Receipt Date: 20200618
  Transmission Date: 20200714
  Serious: Yes (Death, Other)
  Sender: FDA-Public Use
  Company Number: NL-ABBVIE-16P-114-1708413-00

PATIENT
  Age: 81 Year
  Sex: Female

DRUGS (6)
  1. MOVICOLON [Concomitant]
     Active Substance: POLYETHYLENE GLYCOL 3350\POTASSIUM CHLORIDE\SODIUM BICARBONATE\SODIUM CHLORIDE
     Indication: ABNORMAL FAECES
     Dosage: DAILY
  2. DUODOPA [Suspect]
     Active Substance: CARBIDOPA\LEVODOPA
     Indication: PARKINSON^S DISEASE
     Dosage: MD: 15.3, CD: 3.8, ED: 2.0
     Route: 050
     Dates: start: 20160808
  3. DUODOPA [Suspect]
     Active Substance: CARBIDOPA\LEVODOPA
     Dosage: MD: 15.3, CD: 4.0, ED: 2.0
     Route: 050
  4. DUODOPA [Suspect]
     Active Substance: CARBIDOPA\LEVODOPA
     Dosage: STRENGTH (CMP): 20 MG/ML 5 MG/ML
     Route: 050
  5. DUODOPA [Suspect]
     Active Substance: CARBIDOPA\LEVODOPA
     Dosage: MD: 12.0, CD: 4.1, ED: 2.0
     Route: 050
  6. DUODOPA [Suspect]
     Active Substance: CARBIDOPA\LEVODOPA
     Dosage: MD: 12.0?CD: 4,1 ML?ED: 2.0 ML?NIGHT PUMP: 2.5L ED 1.0
     Route: 050

REACTIONS (55)
  - Mobility decreased [Recovered/Resolved]
  - Speech disorder [Not Recovered/Not Resolved]
  - Hypophagia [Not Recovered/Not Resolved]
  - Dementia [Not Recovered/Not Resolved]
  - Gait disturbance [Not Recovered/Not Resolved]
  - Malaise [Not Recovered/Not Resolved]
  - Dyskinesia [Not Recovered/Not Resolved]
  - Bradykinesia [Not Recovered/Not Resolved]
  - Terminal state [Not Recovered/Not Resolved]
  - Fall [Recovered/Resolved]
  - Fatigue [Not Recovered/Not Resolved]
  - Nightmare [Not Recovered/Not Resolved]
  - Stoma site discharge [Unknown]
  - Stoma site pain [Not Recovered/Not Resolved]
  - Parkinson^s disease [Fatal]
  - Muscle rigidity [Not Recovered/Not Resolved]
  - Musculoskeletal stiffness [Not Recovered/Not Resolved]
  - Fall [Unknown]
  - Fall [Recovered/Resolved]
  - Orthostatic hypotension [Not Recovered/Not Resolved]
  - Dizziness [Not Recovered/Not Resolved]
  - Confusional state [Not Recovered/Not Resolved]
  - Device placement issue [Unknown]
  - Device occlusion [Unknown]
  - Muscular weakness [Not Recovered/Not Resolved]
  - Anal incontinence [Not Recovered/Not Resolved]
  - Stress [Not Recovered/Not Resolved]
  - Stoma site discharge [Not Recovered/Not Resolved]
  - Urinary tract infection [Not Recovered/Not Resolved]
  - Fluid intake reduced [Not Recovered/Not Resolved]
  - Poor quality sleep [Not Recovered/Not Resolved]
  - Tension [Not Recovered/Not Resolved]
  - Abnormal faeces [Not Recovered/Not Resolved]
  - Anticipatory anxiety [Not Recovered/Not Resolved]
  - Dyskinesia [Recovered/Resolved]
  - Device issue [Unknown]
  - Dysstasia [Not Recovered/Not Resolved]
  - Cognitive disorder [Not Recovered/Not Resolved]
  - General physical health deterioration [Not Recovered/Not Resolved]
  - Gait disturbance [Not Recovered/Not Resolved]
  - Weight decreased [Recovered/Resolved]
  - Gait disturbance [Recovering/Resolving]
  - Constipation [Recovered/Resolved]
  - Freezing phenomenon [Not Recovered/Not Resolved]
  - Mobility decreased [Not Recovered/Not Resolved]
  - Parkinsonian gait [Not Recovered/Not Resolved]
  - Bradykinesia [Recovered/Resolved]
  - Urinary tract infection [Recovered/Resolved]
  - Muscle rigidity [Recovered/Resolved]
  - Asthenia [Not Recovered/Not Resolved]
  - Abnormal dreams [Not Recovered/Not Resolved]
  - Dysphagia [Recovering/Resolving]
  - Syncope [Not Recovered/Not Resolved]
  - Fatigue [Not Recovered/Not Resolved]
  - On and off phenomenon [Not Recovered/Not Resolved]

NARRATIVE: CASE EVENT DATE: 2016
